FAERS Safety Report 16874751 (Version 3)
Quarter: 2020Q2

REPORT INFORMATION
  Report Type: Spontaneous
  Country: US (occurrence: US)
  Receive Date: 20191001
  Receipt Date: 20200622
  Transmission Date: 20200713
  Serious: No
  Sender: FDA-Public Use
  Company Number: US-AMAG PHARMACEUTICALS, INC.-AMAG201904728

PATIENT
  Age: 82 Year
  Sex: Female
  Weight: 54.03 kg

DRUGS (8)
  1. INTRAROSA [Suspect]
     Active Substance: PRASTERONE
     Indication: VULVOVAGINAL PAIN
     Route: 067
     Dates: start: 20190828
  2. INTRAROSA [Suspect]
     Active Substance: PRASTERONE
     Indication: DYSURIA
     Route: 067
  3. NEUROTIN [Concomitant]
     Indication: NEURALGIA
     Route: 048
  4. ACTONEL [Concomitant]
     Active Substance: RISEDRONATE SODIUM
     Indication: OSTEOPOROSIS
     Dosage: ONCE MONTHLY
     Route: 048
  5. CYMBALTA [Concomitant]
     Active Substance: DULOXETINE HYDROCHLORIDE
     Indication: PAIN
     Route: 048
  6. LIDOCAINE. [Concomitant]
     Active Substance: LIDOCAINE
     Indication: VULVOVAGINAL PAIN
     Dosage: TOPICAL GEL TO URETHRA AS NEEDED
     Route: 061
  7. LIDOCAINE. [Concomitant]
     Active Substance: LIDOCAINE
     Indication: DYSURIA
  8. DEXILANT [Concomitant]
     Active Substance: DEXLANSOPRAZOLE
     Indication: IMPAIRED GASTRIC EMPTYING
     Route: 048

REACTIONS (4)
  - Drug ineffective for unapproved indication [Not Recovered/Not Resolved]
  - Off label use [Unknown]
  - Burning sensation [Not Recovered/Not Resolved]
  - Weight increased [Not Recovered/Not Resolved]

NARRATIVE: CASE EVENT DATE: 20190828
